FAERS Safety Report 9014507 (Version 3)
Quarter: 2013Q1

REPORT INFORMATION
  Report Type: Spontaneous
  Country: JP (occurrence: JP)
  Receive Date: 20130115
  Receipt Date: 20130308
  Transmission Date: 20140127
  Serious: Yes (Other)
  Sender: FDA-Public Use
  Company Number: JP-JNJFOC-20130105298

PATIENT
  Age: 84 Year
  Sex: Female

DRUGS (7)
  1. TRAMCET [Suspect]
     Indication: PAIN
     Dosage: ONCE A DAY
     Route: 048
     Dates: start: 20130107
  2. TRAMCET [Suspect]
     Indication: PAIN
     Dosage: ONCE A DAY
     Route: 048
     Dates: start: 20121226, end: 20130206
  3. TRAMCET [Suspect]
     Indication: CANCER PAIN
     Dosage: ONCE A DAY
     Route: 048
     Dates: start: 20121226, end: 20130206
  4. TRAMCET [Suspect]
     Indication: CANCER PAIN
     Dosage: ONCE A DAY
     Route: 048
     Dates: start: 20130107
  5. MYSLEE [Suspect]
     Indication: INSOMNIA
     Route: 048
  6. AMLODIN [Concomitant]
     Indication: HYPERTENSION
     Route: 048
  7. PREDONINE [Concomitant]
     Route: 048

REACTIONS (5)
  - Delirium [Recovered/Resolved]
  - Hallucination [Recovered/Resolved]
  - Hallucination, visual [Recovered/Resolved]
  - Drug effect decreased [Unknown]
  - Off label use [Unknown]
